FAERS Safety Report 8218317-1 (Version None)
Quarter: 2012Q1

REPORT INFORMATION
  Report Type: 
  Country: None (occurrence: None)
  Receive Date: 20120319
  Receipt Date: 20120315
  Transmission Date: 20120608
  Serious: Yes (Hospitalization)
  Sender: FDA-Public Use
  Company Number: US-GLAXOSMITHKLINE-A0896382A

PATIENT
  Age: 54 Year
  Sex: Male
  Weight: 106.8 kg

DRUGS (5)
  1. PRAVACHOL [Concomitant]
  2. AVANDIA [Suspect]
     Indication: DIABETES MELLITUS
     Dosage: 4MG PER DAY
     Route: 048
     Dates: start: 20090101, end: 20100417
  3. CELEXA [Concomitant]
  4. INSULIN [Concomitant]
  5. CIALIS [Concomitant]

REACTIONS (5)
  - CARDIAC DISORDER [None]
  - CEREBRAL INFARCTION [None]
  - CARDIOVASCULAR DISORDER [None]
  - TRANSIENT ISCHAEMIC ATTACK [None]
  - CEREBROVASCULAR ACCIDENT [None]
